FAERS Safety Report 15035695 (Version 1)
Quarter: 2018Q2

REPORT INFORMATION
  Report Type: Spontaneous
  Country: US (occurrence: US)
  Receive Date: 20180620
  Receipt Date: 20180620
  Transmission Date: 20180711
  Serious: Yes (Hospitalization, Other)
  Sender: FDA-Public Use
  Company Number: US-GLAXOSMITHKLINE-US2018107650

PATIENT
  Age: 77 Year
  Sex: Male

DRUGS (9)
  1. AMIODARONE [Concomitant]
     Active Substance: AMIODARONE
  2. LOSARTAN. [Concomitant]
     Active Substance: LOSARTAN
  3. ADVAIR DISKUS [Suspect]
     Active Substance: FLUTICASONE PROPIONATE\SALMETEROL XINAFOATE
     Indication: CHRONIC OBSTRUCTIVE PULMONARY DISEASE
     Dosage: 1 PUFF(S), QD
     Route: 055
     Dates: start: 201506
  4. GLIPIZIDE. [Concomitant]
     Active Substance: GLIPIZIDE
  5. TRESIBA [Concomitant]
     Active Substance: INSULIN DEGLUDEC
  6. NOVOLOG [Concomitant]
     Active Substance: INSULIN ASPART
  7. VENTOLIN [Suspect]
     Active Substance: ALBUTEROL SULFATE
     Indication: CHRONIC OBSTRUCTIVE PULMONARY DISEASE
     Dosage: 2 PUFF(S), PRN
     Route: 055
     Dates: start: 201506
  8. ELIQUIS [Concomitant]
     Active Substance: APIXABAN
  9. METFORMIN [Concomitant]
     Active Substance: METFORMIN HYDROCHLORIDE

REACTIONS (3)
  - Arrhythmia [Recovered/Resolved]
  - Colon cancer [Recovered/Resolved]
  - Colon operation [Recovered/Resolved]

NARRATIVE: CASE EVENT DATE: 201601
